FAERS Safety Report 24006863 (Version 4)
Quarter: 2024Q3

REPORT INFORMATION
  Report Type: Spontaneous
  Country: JP (occurrence: JP)
  Receive Date: 20240624
  Receipt Date: 20240920
  Transmission Date: 20241016
  Serious: Yes (Death, Other)
  Sender: JAZZ
  Company Number: JP-JAZZ PHARMACEUTICALS-2024-JP-009599

PATIENT

DRUGS (4)
  1. DEFITELIO [Suspect]
     Active Substance: DEFIBROTIDE SODIUM
     Indication: Venoocclusive liver disease
     Dosage: 100 MILLIGRAM, QD
     Route: 042
     Dates: start: 20240611, end: 20240611
  2. DEFITELIO [Suspect]
     Active Substance: DEFIBROTIDE SODIUM
     Dosage: 200 MILLIGRAM, QD
     Route: 042
     Dates: start: 20240612, end: 20240612
  3. DEFITELIO [Suspect]
     Active Substance: DEFIBROTIDE SODIUM
     Dosage: 300 MILLIGRAM, QD
     Route: 042
     Dates: start: 20240613, end: 20240702
  4. FRAGMIN [Concomitant]
     Active Substance: DALTEPARIN SODIUM
     Indication: Product used for unknown indication
     Dosage: UNK
     Dates: start: 20240525, end: 20240611

REACTIONS (7)
  - Cytomegalovirus infection [Fatal]
  - Thrombocytopenia [Unknown]
  - Renal disorder [Unknown]
  - Sclerema [Unknown]
  - Weight increased [Unknown]
  - Oedema [Unknown]
  - Off label use [Unknown]

NARRATIVE: CASE EVENT DATE: 20240601
